FAERS Safety Report 18506118 (Version 1)
Quarter: 2020Q4

REPORT INFORMATION
  Report Type: Spontaneous
  Country: DE (occurrence: DE)
  Receive Date: 20201116
  Receipt Date: 20201116
  Transmission Date: 20210114
  Serious: Yes (Hospitalization)
  Sender: FDA-Public Use
  Company Number: DE-TEVA-2020-DE-1848470

PATIENT
  Age: 89 Year
  Sex: Female

DRUGS (9)
  1. ACETYLSALICYLSAEURE [Suspect]
     Active Substance: ASPIRIN
     Dosage: 100 MG
     Route: 048
     Dates: end: 20200826
  2. RIVAROXABAN [Suspect]
     Active Substance: RIVAROXABAN
     Dosage: 20 MILLIGRAM DAILY;  1-0-0-0
     Route: 048
  3. CLOPIDOGREL [Suspect]
     Active Substance: CLOPIDOGREL BISULFATE
     Dosage: 75 MILLIGRAM DAILY;  1-0-0-0
     Route: 048
  4. METOPROLOL. [Concomitant]
     Active Substance: METOPROLOL
     Dosage: 190 MILLIGRAM DAILY; 1-0-1-0
     Route: 048
  5. MOXONIDIN [Concomitant]
     Active Substance: MOXONIDINE
     Dosage: .4 MILLIGRAM DAILY;  1-0-1-0
     Route: 048
  6. COLECALCIFEROL [Concomitant]
     Active Substance: CHOLECALCIFEROL
     Dosage: 20,000 IU / WEEK, 1X
     Route: 048
  7. AMLODIPIN [Concomitant]
     Active Substance: AMLODIPINE BESYLATE
     Dosage: 5 MILLIGRAM DAILY;  1-0-0-0
     Route: 048
  8. DEXAMETHASON [Concomitant]
     Active Substance: DEXAMETHASONE
     Dosage: .25 DOSAGE FORMS DAILY; 4 MG, 0.25-0-0-0
     Route: 048
  9. RAMIPRIL. [Concomitant]
     Active Substance: RAMIPRIL
     Dosage: 10 MILLIGRAM DAILY; 1-0-1-0
     Route: 048

REACTIONS (2)
  - Arterial haemorrhage [Unknown]
  - Wound [Unknown]
